FAERS Safety Report 5887396-9 (Version None)
Quarter: 2008Q3

REPORT INFORMATION
  Report Type: 
  Country: None (occurrence: None)
  Receive Date: 20080915
  Receipt Date: 20080908
  Transmission Date: 20090109
  Serious: Yes (Hospitalization, Other)
  Sender: FDA-Public Use
  Company Number: US024276

PATIENT
  Age: 26 Year
  Sex: Female

DRUGS (1)
  1. PROVIGIL [Suspect]
     Indication: NARCOLEPSY
     Dosage: TID ORAL
     Route: 048
     Dates: start: 20050401, end: 20080701

REACTIONS (4)
  - ANAEMIA [None]
  - BLOOD HUMAN CHORIONIC GONADOTROPIN POSITIVE [None]
  - LABOUR INDUCTION [None]
  - POST PROCEDURAL HAEMORRHAGE [None]
